FAERS Safety Report 12553985 (Version 1)
Quarter: 2016Q3

REPORT INFORMATION
  Report Type: Spontaneous
  Country: GB (occurrence: GB)
  Receive Date: 20160713
  Receipt Date: 20160713
  Transmission Date: 20161109
  Serious: Yes (Other)
  Sender: FDA-Public Use
  Company Number: GB-FRESENIUS KABI-FK201604322

PATIENT
  Age: 50 Year
  Sex: Female

DRUGS (11)
  1. ANASTROZOLE (MANUFACTURER UNKNOWN) [Suspect]
     Active Substance: ANASTROZOLE
     Indication: PRODUCT USED FOR UNKNOWN INDICATION
     Route: 048
  2. DENOSUMAB [Concomitant]
     Active Substance: DENOSUMAB
  3. CITALOPRAM [Concomitant]
     Active Substance: CITALOPRAM HYDROBROMIDE
  4. CARBIMAZOLE [Concomitant]
     Active Substance: CARBIMAZOLE
  5. MAGNESIUM SALICYLATE [Concomitant]
     Active Substance: MAGNESIUM SALICYLATE
  6. DIAZEPAM. [Concomitant]
     Active Substance: DIAZEPAM
  7. PARACETAMOL [Concomitant]
     Active Substance: ACETAMINOPHEN
  8. PROPRANOLOL [Concomitant]
     Active Substance: PROPRANOLOL\PROPRANOLOL HYDROCHLORIDE
  9. TAMOXIFEN [Suspect]
     Active Substance: TAMOXIFEN
     Indication: PRODUCT USED FOR UNKNOWN INDICATION
     Route: 048
  10. ORAMORPH [Concomitant]
     Active Substance: MORPHINE SULFATE
  11. ZOPICLONE [Concomitant]
     Active Substance: ZOPICLONE

REACTIONS (2)
  - Disease recurrence [Unknown]
  - Metastases to bone [Unknown]

NARRATIVE: CASE EVENT DATE: 201110
